FAERS Safety Report 6076583-5 (Version None)
Quarter: 2009Q1

REPORT INFORMATION
  Report Type: 
  Country: None (occurrence: None)
  Receive Date: 20090213
  Receipt Date: 20090203
  Transmission Date: 20090719
  Serious: Yes (Other)
  Sender: FDA-Public Use
  Company Number: ES-JNJFOC-20090201479

PATIENT
  Sex: Female

DRUGS (4)
  1. REMICADE [Suspect]
     Indication: PSORIATIC ARTHROPATHY
     Route: 042
  2. AINES [Concomitant]
  3. BIPHOSPHONATES [Concomitant]
  4. IRBESARTAN [Concomitant]

REACTIONS (1)
  - BREAST CANCER [None]
